FAERS Safety Report 6115532-8 (Version None)
Quarter: 2009Q1

REPORT INFORMATION
  Report Type: 
  Country: None (occurrence: None)
  Receive Date: 20090313
  Receipt Date: 20090302
  Transmission Date: 20090719
  Serious: Yes (Disabling)
  Sender: FDA-Public Use
  Company Number: AU-ELI_LILLY_AND_COMPANY-AU200901002525

PATIENT
  Sex: Male

DRUGS (15)
  1. ZYPREXA [Suspect]
     Indication: PSYCHOTIC DISORDER
     Dosage: 5 MG, AS NEEDED
  2. ZYPREXA [Suspect]
     Dosage: 2.5 MG, AS NEEDED
  3. OSTEVIT-D [Concomitant]
     Indication: OSTEOPOROSIS
     Dosage: UNK, UNK
  4. CALTRATE [Concomitant]
     Dosage: 600 MG, DAILY (1/D)
  5. RAMIPRIL [Concomitant]
     Dosage: 2.5 MG, UNK
  6. TAZAC [Concomitant]
     Dosage: 150 MG, 2/D
  7. LASIX M [Concomitant]
  8. PARACETAMOL [Concomitant]
     Dosage: 1000 MG, EACH MORNING
  9. PARACETAMOL [Concomitant]
     Dosage: 500 MG, AS NEEDED
  10. DUPHALAC [Concomitant]
     Dosage: 15 ML, 2/D
  11. AMOXIL [Concomitant]
     Dosage: 500 MG, 3/D
     Dates: start: 20090105
  12. RULIDE [Concomitant]
     Dosage: 150 MG, DAILY (1/D)
     Dates: start: 20090105
  13. SERENACE [Concomitant]
     Dosage: 2 UNK, AS NEEDED
  14. DUROLAX [Concomitant]
     Dosage: 1 D/F, AS NEEDED
  15. PANAFCORTELONE [Concomitant]
     Dosage: 1 MG, UNK

REACTIONS (4)
  - CREATININE RENAL CLEARANCE DECREASED [None]
  - MOVEMENT DISORDER [None]
  - POTENTIATING DRUG INTERACTION [None]
  - RASH [None]
